FAERS Safety Report 8775527 (Version 1)
Quarter: 2012Q4

REPORT INFORMATION
  Report Type: 
  Country: US (occurrence: US)
  Receive Date: 20120910
  Receipt Date: 20120910
  Transmission Date: 20130627
  Serious: Yes (Other)
  Sender: FDA-Public Use
  Company Number: US-BAYER-2012-093563

PATIENT
  Age: 53 Year
  Sex: Female
  Weight: 67 kg

DRUGS (1)
  1. ALEVE CAPLET/TABLET,MIDOL EXTENDED RELIEF CAPLET [Suspect]
     Indication: LIGAMENT SPRAIN
     Dosage: 3 DF, every 8 hours
     Dates: start: 20120902

REACTIONS (2)
  - Abdominal pain upper [Not Recovered/Not Resolved]
  - Faeces discoloured [None]
